FAERS Safety Report 7915500-7 (Version None)
Quarter: 2011Q4

REPORT INFORMATION
  Report Type: 
  Country: None (occurrence: None)
  Receive Date: 20111115
  Receipt Date: 20111102
  Transmission Date: 20120403
  Serious: Yes (Death, Hospitalization)
  Sender: FDA-Public Use
  Company Number: RS-MYLANLABS-2011S1022965

PATIENT
  Age: 32 Year
  Sex: Male

DRUGS (1)
  1. AMIODARONE HCL [Suspect]
     Indication: ATRIAL FIBRILLATION
     Dosage: 300MG FOR 30 MIN
     Route: 042

REACTIONS (5)
  - VENTRICULAR TACHYCARDIA [None]
  - VENTRICULAR FIBRILLATION [None]
  - RESPIRATORY FAILURE [None]
  - COMA [None]
  - CARDIAC ARREST [None]
